FAERS Safety Report 7718121-4 (Version None)
Quarter: 2011Q3

REPORT INFORMATION
  Report Type: 
  Country: None (occurrence: None)
  Receive Date: 20110830
  Receipt Date: 20110822
  Transmission Date: 20111222
  Serious: Yes (Hospitalization)
  Sender: FDA-Public Use
  Company Number: CA-JNJFOC-20100707558

PATIENT
  Sex: Female
  Weight: 81.8 kg

DRUGS (12)
  1. REMICADE [Suspect]
     Route: 042
  2. REMICADE [Suspect]
     Route: 042
     Dates: start: 20110602
  3. REMICADE [Suspect]
     Route: 042
  4. REMICADE [Suspect]
     Route: 042
  5. REMICADE [Suspect]
     Route: 042
  6. REMICADE [Suspect]
     Indication: CROHN'S DISEASE
     Route: 042
  7. REMICADE [Suspect]
     Route: 042
  8. REMICADE [Suspect]
     Route: 042
     Dates: start: 20100722
  9. ATIVAN [Concomitant]
     Dosage: AS NECESSARY
     Route: 065
  10. REMICADE [Suspect]
     Route: 042
     Dates: start: 20110822
  11. CYCLOBENZAPRINE [Concomitant]
     Route: 065
  12. REMICADE [Suspect]
     Route: 042
     Dates: start: 20090824

REACTIONS (7)
  - ARTHROPATHY [None]
  - LIGAMENT SPRAIN [None]
  - ARTHROSCOPIC SURGERY [None]
  - FALL [None]
  - THORACIC VERTEBRAL FRACTURE [None]
  - CARTILAGE INJURY [None]
  - URTICARIA [None]
